FAERS Safety Report 20542716 (Version 8)
Quarter: 2022Q3

REPORT INFORMATION
  Report Type: Report from Study
  Country: US (occurrence: US)
  Receive Date: 20220302
  Receipt Date: 20220705
  Transmission Date: 20221026
  Serious: Yes (Other)
  Sender: FDA-Public Use
  Company Number: US-NOVARTISPH-NVSC2022US043135

PATIENT
  Sex: Male

DRUGS (1)
  1. ENTRESTO [Suspect]
     Active Substance: SACUBITRIL\VALSARTAN
     Indication: Product used for unknown indication
     Dosage: 1 DOSAGE FORM, BID
     Route: 048
     Dates: start: 2021

REACTIONS (16)
  - Cataract [Recovering/Resolving]
  - Vitreous floaters [Not Recovered/Not Resolved]
  - Atrial fibrillation [Recovered/Resolved]
  - Myopia [Unknown]
  - Dyspnoea exertional [Unknown]
  - Fatigue [Not Recovered/Not Resolved]
  - Heart rate increased [Unknown]
  - Dyspnoea [Unknown]
  - White blood cell count increased [Unknown]
  - Wound [Unknown]
  - Dehydration [Unknown]
  - Chills [Unknown]
  - Infection [Unknown]
  - Urine output decreased [Unknown]
  - Device malfunction [Unknown]
  - Procedural pain [Unknown]
